FAERS Safety Report 19162235 (Version 3)
Quarter: 2022Q1

REPORT INFORMATION
  Report Type: Other
  Country: US (occurrence: None)
  Receive Date: 20210421
  Receipt Date: 20220304
  Transmission Date: 20220423
  Serious: Yes (Hospitalization, Other)
  Sender: FDA-Public Use
  Company Number: US-ROCHE-2808868

PATIENT
  Age: 54 Year
  Sex: Male
  Weight: 115.77 kg

DRUGS (1)
  1. OCREVUS [Suspect]
     Active Substance: OCRELIZUMAB
     Indication: Relapsing-remitting multiple sclerosis
     Dosage: DAY 1 AND 15 AT DOSE 300 MG, THEN EVERY 6 MONTHS 600 MG.?DATE OF TREATMENT: 17/JUL/2018, 16/JAN/2019
     Route: 042
     Dates: start: 20180115

REACTIONS (4)
  - Urinary tract infection [Recovered/Resolved]
  - COVID-19 pneumonia [Recovered/Resolved]
  - Coma [Recovered/Resolved]
  - Weight decreased [Recovered/Resolved]

NARRATIVE: CASE EVENT DATE: 20210103
